FAERS Safety Report 7164828-X (Version None)
Quarter: 2010Q4

REPORT INFORMATION
  Report Type: 
  Country: None (occurrence: None)
  Receive Date: 20101215
  Receipt Date: 20101201
  Transmission Date: 20110411
  Serious: Yes (Hospitalization)
  Sender: FDA-Public Use
  Company Number: AU-MERCK-97032115

PATIENT
  Age: 76 Year
  Sex: Female
  Weight: 58 kg

DRUGS (6)
  1. ZOCOR [Suspect]
     Indication: HYPERCHOLESTEROLAEMIA
     Route: 048
     Dates: start: 19950401, end: 19970117
  2. LASIX [Suspect]
     Indication: CELLULITIS
     Route: 048
     Dates: start: 19961230, end: 19970117
  3. METOPROLOL TARTRATE [Concomitant]
     Indication: ACUTE MYOCARDIAL INFARCTION
     Route: 065
     Dates: start: 19950401, end: 19970117
  4. ASPIRIN [Concomitant]
     Indication: ACUTE MYOCARDIAL INFARCTION
     Route: 065
     Dates: start: 19950401, end: 19970117
  5. AMLODIPINE [Concomitant]
     Indication: ACUTE MYOCARDIAL INFARCTION
     Route: 065
     Dates: start: 19950401, end: 19970117
  6. E.E.S. [Suspect]
     Indication: CELLULITIS
     Route: 048
     Dates: start: 19961230, end: 19970117

REACTIONS (6)
  - CHEST PAIN [None]
  - DEHYDRATION [None]
  - MYALGIA [None]
  - ORTHOSTATIC HYPOTENSION [None]
  - PARESIS [None]
  - RHABDOMYOLYSIS [None]
